FAERS Safety Report 24348554 (Version 1)
Quarter: 2024Q3

REPORT INFORMATION
  Report Type: Report from Study
  Country: US (occurrence: US)
  Receive Date: 20240923
  Receipt Date: 20240923
  Transmission Date: 20241016
  Serious: Yes (Hospitalization)
  Sender: ACCORD
  Company Number: US-Accord-446965

PATIENT
  Sex: Female
  Weight: 75.3 kg

DRUGS (1)
  1. CLOZAPINE [Suspect]
     Active Substance: CLOZAPINE
     Indication: Depression
     Dosage: 100MG TABLETS + 50MG TABLET, ORAL, DAILY AT BEDTIME, (TOTAL DOSE 150MG EVERY NIGHT AT BEDTIME)
     Route: 048

REACTIONS (4)
  - Dementia [Unknown]
  - Confusional state [Unknown]
  - Abnormal behaviour [Unknown]
  - Mental disorder [Unknown]
